FAERS Safety Report 14156593 (Version 1)
Quarter: 2017Q4

REPORT INFORMATION
  Report Type: Spontaneous
  Country: PT (occurrence: PT)
  Receive Date: 20171103
  Receipt Date: 20171103
  Transmission Date: 20180321
  Serious: Yes (Hospitalization, Other)
  Sender: FDA-Public Use
  Company Number: PT-VISTAPHARM, INC.-VER201710-001005

PATIENT
  Age: 79 Year
  Sex: Male

DRUGS (4)
  1. CYCLOSPORINE. [Suspect]
     Active Substance: CYCLOSPORINE
     Indication: PRODUCT USED FOR UNKNOWN INDICATION
  2. LIPOSOMAL AMPHOTERICIN B [Suspect]
     Active Substance: AMPHOTERICIN B
     Indication: SKIN INFECTION
  3. MYCOPHENOLATE-MOFETIL [Suspect]
     Active Substance: MYCOPHENOLATE MOFETIL
     Indication: PRODUCT USED FOR UNKNOWN INDICATION
  4. PREDNISOLONE. [Suspect]
     Active Substance: PREDNISOLONE
     Indication: PRODUCT USED FOR UNKNOWN INDICATION

REACTIONS (5)
  - Pulmonary haemosiderosis [Unknown]
  - Skin infection [Unknown]
  - Respiratory failure [Unknown]
  - Septic shock [Unknown]
  - Pneumonia [Unknown]
